FAERS Safety Report 10261154 (Version 1)
Quarter: 2014Q2

REPORT INFORMATION
  Report Type: Spontaneous
  Country: US (occurrence: US)
  Receive Date: 20140626
  Receipt Date: 20140626
  Transmission Date: 20141212
  Serious: No
  Sender: FDA-Public Use
  Company Number: US-BAYER-2014-095983

PATIENT
  Age: 84 Year
  Sex: Female
  Weight: 89.8 kg

DRUGS (5)
  1. ALEVE CAPLET [Suspect]
     Indication: MYALGIA
     Dosage: 1 DF, ONCE
     Route: 048
     Dates: start: 20140624, end: 20140624
  2. ALEVE CAPLET [Suspect]
     Indication: OSTEOPOROSIS
  3. SUDAFED [Concomitant]
  4. CLARITIN [Concomitant]
  5. SUDOGEST [Concomitant]

REACTIONS (1)
  - Drug ineffective [None]
